FAERS Safety Report 11994010 (Version 1)
Quarter: 2016Q1

REPORT INFORMATION
  Report Type: Spontaneous
  Country: US (occurrence: US)
  Receive Date: 20160203
  Receipt Date: 20160203
  Transmission Date: 20160526
  Serious: No
  Sender: FDA-Public Use
  Company Number: US-UCBSA-2015026797

PATIENT
  Age: 52 Year
  Sex: Female

DRUGS (3)
  1. KEPPRA [Suspect]
     Active Substance: LEVETIRACETAM
     Indication: OFF LABEL USE
  2. KEPPRA [Suspect]
     Active Substance: LEVETIRACETAM
     Indication: MIGRAINE
  3. KEPPRA [Suspect]
     Active Substance: LEVETIRACETAM
     Indication: EPILEPSY

REACTIONS (3)
  - Migraine [Unknown]
  - Visual impairment [Unknown]
  - Off label use [Unknown]
